FAERS Safety Report 18692674 (Version 2)
Quarter: 2022Q2

REPORT INFORMATION
  Report Type: Report from Study
  Country: BE (occurrence: BE)
  Receive Date: 20210104
  Receipt Date: 20220614
  Transmission Date: 20220721
  Serious: Yes (Hospitalization, Other)
  Sender: FDA-Public Use
  Company Number: BE-JNJFOC-20170429369

PATIENT
  Age: 81 Year
  Sex: Female
  Weight: 55.7 kg

DRUGS (29)
  1. IMBRUVICA [Suspect]
     Active Substance: IBRUTINIB
     Indication: Chronic lymphocytic leukaemia
     Route: 048
     Dates: start: 20160726, end: 20160909
  2. IMBRUVICA [Suspect]
     Active Substance: IBRUTINIB
     Indication: Chronic lymphocytic leukaemia
     Route: 048
     Dates: start: 20160914
  3. IMBRUVICA [Suspect]
     Active Substance: IBRUTINIB
     Route: 048
     Dates: start: 20170430, end: 20170831
  4. ALDACTONE [Concomitant]
     Active Substance: SPIRONOLACTONE
     Indication: Product used for unknown indication
     Dosage: 1/D, 8U
     Route: 065
  5. FLECAINIDE ACETATE [Concomitant]
     Active Substance: FLECAINIDE ACETATE
     Indication: Product used for unknown indication
     Dosage: CAPS RETARD 1/D, 12U
     Route: 065
  6. ASPIRIN [Concomitant]
     Active Substance: ASPIRIN
     Indication: Product used for unknown indication
     Dosage: 1/D, 8U
     Route: 065
  7. TICAGRELOR [Concomitant]
     Active Substance: TICAGRELOR
     Indication: Product used for unknown indication
     Dosage: 1 STUCKS, 2/D, 8U 20U, TOT 11-11-2016
     Route: 065
  8. BUMETANIDE [Concomitant]
     Active Substance: BUMETANIDE
     Indication: Product used for unknown indication
     Dosage: 1/D, 12U
     Route: 065
  9. BUMETANIDE [Concomitant]
     Active Substance: BUMETANIDE
     Indication: Product used for unknown indication
     Dosage: 1 / D, 12 HOURS
  10. ISOSORBIDE DINITRATE [Concomitant]
     Active Substance: ISOSORBIDE DINITRATE
     Indication: Product used for unknown indication
     Dosage: SUBL, WITH ANGINA (ANGOR) (MAX 2)
     Route: 060
  11. MOLSIDOMINE [Concomitant]
     Active Substance: MOLSIDOMINE
     Indication: Product used for unknown indication
     Dosage: TABLET RETARD, 1/D, 12U
     Route: 065
  12. BISOPROLOL FUMARATE\HYDROCHLOROTHIAZIDE [Concomitant]
     Active Substance: BISOPROLOL FUMARATE\HYDROCHLOROTHIAZIDE
     Indication: Product used for unknown indication
     Dosage: DRAG 25-12, 1/D, 8U
     Route: 065
  13. HUMALOG [Concomitant]
     Active Substance: INSULIN LISPRO
     Indication: Product used for unknown indication
     Dosage: 5E, SC,1/D, 17U
     Route: 065
  14. HUMALOG [Concomitant]
     Active Substance: INSULIN LISPRO
     Dosage: 5E, SC,1/D, 8U
     Route: 065
  15. HUMALOG [Concomitant]
     Active Substance: INSULIN LISPRO
     Dosage: 4E, SC,1/D, 12U
     Route: 065
  16. HUMALOG [Concomitant]
     Active Substance: INSULIN LISPRO
     Indication: Product used for unknown indication
     Dosage: 12 E, SC, 1 / D, 12 H
     Route: 058
  17. HUMALOG [Concomitant]
     Active Substance: INSULIN LISPRO
     Dosage: 12 U, SC, 1 / D, 8 H
     Route: 058
  18. HUMALOG [Concomitant]
     Active Substance: INSULIN LISPRO
     Dosage: 10 E, SC, 1 / D, 5 PM
     Route: 058
  19. LANTUS [Concomitant]
     Active Substance: INSULIN GLARGINE
     Indication: Product used for unknown indication
     Dosage: 8E, SC, 1/D, 22U
     Route: 065
  20. LIPITOR [Concomitant]
     Active Substance: ATORVASTATIN CALCIUM
     Indication: Product used for unknown indication
     Dosage: 20 MG, 1/D, 20U
     Route: 065
  21. RAMIPRIL [Concomitant]
     Active Substance: RAMIPRIL
     Indication: Product used for unknown indication
     Dosage: 5 MG, 1/D, 8U
     Route: 065
  22. BARNIDIPINE HYDROCHLORIDE [Concomitant]
     Active Substance: BARNIDIPINE HYDROCHLORIDE
     Indication: Product used for unknown indication
     Dosage: 20 MG, 1/D, 12U
     Route: 065
  23. ARANESP [Concomitant]
     Active Substance: DARBEPOETIN ALFA
     Indication: Product used for unknown indication
     Dosage: (SYRINGE (ANG) 300 MCG), 1 PIECE,8 HOURS
     Route: 058
  24. COVERAM [Concomitant]
     Active Substance: AMLODIPINE\PERINDOPRIL
     Indication: Product used for unknown indication
     Dosage: PERINDOPRIL -AMLODIPINE (TABL 5- 5 MG), 1 TABL (DAILY DOSE), 1 / D, 8H
  25. DAFALGAN [Concomitant]
     Active Substance: ACETAMINOPHEN
     Indication: Product used for unknown indication
     Dosage: WITH PAIN EVERY 4 HOURS (MAX 1)
  26. BISOPROLOL FUMARATE [Concomitant]
     Active Substance: BISOPROLOL FUMARATE
     Indication: Product used for unknown indication
     Dosage: 1 / D, 8 P.M.
  27. TOUJEO [Concomitant]
     Active Substance: INSULIN GLARGINE
     Indication: Product used for unknown indication
     Dosage: 300, 7 E, SC, 1 / D, 5 PM
  28. MOVICOL [Concomitant]
     Active Substance: POLYETHYLENE GLYCOL 3350\POTASSIUM CHLORIDE\SODIUM BICARBONATE\SODIUM CHLORIDE
     Indication: Product used for unknown indication
     Dosage: (NEUTRAL BAG 13.79 G), 1 BAG,
  29. TEARS NATURALE                     /00134201/ [Concomitant]
     Indication: Product used for unknown indication
     Dosage: FL COLL 15ML, 1 DROP, LOC BILATERAL, 3/D

REACTIONS (4)
  - Malaise [Recovered/Resolved]
  - Pneumonia [Recovered/Resolved]
  - Hypotension [Recovered/Resolved with Sequelae]
  - Decreased appetite [Recovered/Resolved]

NARRATIVE: CASE EVENT DATE: 20160901
